FAERS Safety Report 5263173-7 (Version None)
Quarter: 2007Q1

REPORT INFORMATION
  Report Type: 
  Country: None (occurrence: None)
  Receive Date: 20070312
  Receipt Date: 20070228
  Transmission Date: 20070707
  Serious: Yes (Other)
  Sender: FDA-Public Use
  Company Number: US-PFIZER INC-2007016680

PATIENT
  Sex: Female
  Weight: 141.5 kg

DRUGS (9)
  1. LIPITOR [Suspect]
     Indication: BLOOD CHOLESTEROL INCREASED
  2. GLYBURIDE [Concomitant]
  3. CLARINEX [Concomitant]
  4. ALTACE [Concomitant]
  5. DYAZIDE [Concomitant]
  6. NEXIUM [Concomitant]
  7. LEXAPRO [Concomitant]
  8. AVANDIA [Concomitant]
  9. ACETYLSALICYLIC ACID SRT [Concomitant]

REACTIONS (5)
  - ARTHROPATHY [None]
  - BLOOD CREATINE PHOSPHOKINASE INCREASED [None]
  - MUSCLE SPASMS [None]
  - MUSCULAR WEAKNESS [None]
  - PAIN IN EXTREMITY [None]
